FAERS Safety Report 13402475 (Version 1)
Quarter: 2017Q2

REPORT INFORMATION
  Report Type: Spontaneous
  Country: HU (occurrence: HU)
  Receive Date: 20170404
  Receipt Date: 20170404
  Transmission Date: 20170830
  Serious: Yes (Other)
  Sender: FDA-Public Use
  Company Number: HU-ELI_LILLY_AND_COMPANY-HU201703010175

PATIENT
  Sex: Female

DRUGS (2)
  1. XEPLION [Concomitant]
     Active Substance: PALIPERIDONE PALMITATE
  2. ZYPREXA [Suspect]
     Active Substance: OLANZAPINE
     Indication: PRODUCT USED FOR UNKNOWN INDICATION
     Dosage: 10 MG, UNK

REACTIONS (9)
  - Depression [Unknown]
  - Sedation [Unknown]
  - Somnolence [Unknown]
  - Viral upper respiratory tract infection [Unknown]
  - Hallucination [Unknown]
  - Amnesia [Unknown]
  - Insomnia [Unknown]
  - Headache [Unknown]
  - Neurotransmitter level altered [Unknown]
